FAERS Safety Report 19095555 (Version 1)
Quarter: 2021Q2

REPORT INFORMATION
  Report Type: Spontaneous
  Country: PT (occurrence: PT)
  Receive Date: 20210406
  Receipt Date: 20210406
  Transmission Date: 20210717
  Serious: Yes (Hospitalization, Other)
  Sender: FDA-Public Use
  Company Number: PT-AUROBINDO-AUR-APL-2021-013384

PATIENT
  Age: 72 Year
  Sex: Male

DRUGS (4)
  1. BORTEZOMIB POWDER FOR SOLUTION FOR INJECTION [Suspect]
     Active Substance: BORTEZOMIB
     Indication: PLASMA CELL MYELOMA
     Dosage: UNK (LYOPHILIZED POWDER)
     Route: 065
     Dates: start: 20170511
  2. BORTEZOMIB POWDER FOR SOLUTION FOR INJECTION [Suspect]
     Active Substance: BORTEZOMIB
     Dosage: UNK (LYOPHILIZED POWDER)
     Route: 065
     Dates: start: 20170619
  3. PREDNISOLONE. [Suspect]
     Active Substance: PREDNISOLONE
     Indication: PLASMA CELL MYELOMA
     Dosage: UNK
     Route: 065
     Dates: start: 20170511
  4. MELPHALAN. [Suspect]
     Active Substance: MELPHALAN
     Indication: PLASMA CELL MYELOMA
     Dosage: UNK
     Route: 065
     Dates: start: 20170511

REACTIONS (1)
  - Interstitial lung disease [Recovering/Resolving]

NARRATIVE: CASE EVENT DATE: 201705
